FAERS Safety Report 23649291 (Version 1)
Quarter: 2024Q1

REPORT INFORMATION
  Report Type: Spontaneous
  Country: AU (occurrence: AU)
  Receive Date: 20240319
  Receipt Date: 20240319
  Transmission Date: 20240410
  Serious: Yes (Hospitalization, Other)
  Sender: FDA-Public Use
  Company Number: AU-009507513-2403AUS004550

PATIENT
  Age: 65 Year
  Sex: Female

DRUGS (2)
  1. KEYTRUDA [Suspect]
     Active Substance: PEMBROLIZUMAB
     Indication: Non-small cell lung cancer
     Dosage: 200 MG IV D1 OF 21-DAY CYCLE
     Route: 042
     Dates: start: 20210322, end: 20221031
  2. NEMVALEUKIN ALFA [Suspect]
     Active Substance: NEMVALEUKIN ALFA
     Indication: Non-small cell lung cancer
     Dosage: 6 MILLIGRAM/KILOGRAM, CYCLICAL
     Route: 042
     Dates: start: 20210322, end: 20221104

REACTIONS (4)
  - Acute kidney injury [Unknown]
  - Dyspnoea [Unknown]
  - Purpura [Unknown]
  - Vasculitis [Unknown]

NARRATIVE: CASE EVENT DATE: 20221115
